FAERS Safety Report 8175301 (Version 5)
Quarter: 2012Q4

REPORT INFORMATION
  Report Type: Report from Study
  Country: JP (occurrence: JP)
  Receive Date: 20111011
  Receipt Date: 20121022
  Transmission Date: 20130627
  Serious: Yes (Hospitalization, Disabling, Other)
  Sender: FDA-Public Use
  Company Number: JP-PFIZER INC-2011240182

PATIENT
  Age: 71 Year
  Sex: Female
  Weight: 56 kg

DRUGS (13)
  1. CAMPTO [Suspect]
     Indication: COLORECTAL CANCER
     Dosage: 213 mg, 1x/day
     Route: 041
     Dates: start: 20110105, end: 20110105
  2. CAMPTO [Suspect]
     Dosage: 213 mg, 1x/day
     Route: 041
     Dates: start: 20110202, end: 20110202
  3. CAMPTO [Suspect]
     Dosage: 150 mg, 1x/day
     Route: 041
     Dates: start: 20110523, end: 20110523
  4. LEVOFOLINATE CALCIUM [Concomitant]
     Indication: COLORECTAL CANCER
     Dosage: 284 mg/body (200 mg/m2)
     Route: 041
     Dates: start: 20110105
  5. LEVOFOLINATE CALCIUM [Concomitant]
     Dosage: 275 mg/body (193.7 mg/m2)
     Route: 041
     Dates: start: 20110523
  6. 5-FU [Concomitant]
     Indication: COLORECTAL CANCER
     Dosage: 568 mg/body (400 mg/m2), cyclic
     Route: 040
     Dates: start: 20110105, end: 20110202
  7. 5-FU [Concomitant]
     Dosage: 3408 mg/body/d1-2 (2400 mg/m2/d1-2), cyclic
     Route: 041
     Dates: start: 20110105, end: 20110202
  8. 5-FU [Concomitant]
     Dosage: 500 mg/body (352.1 mg/m2), cyclic
     Route: 040
     Dates: start: 20110523
  9. 5-FU [Concomitant]
     Dosage: 3000 mg/body/d1-2 (2112.7 mg/m2/d1-2), cyclic
     Route: 041
     Dates: start: 20110523
  10. AVASTIN [Concomitant]
     Indication: COLORECTAL CANCER
     Dosage: 5 mg/kg, UNK
     Route: 041
     Dates: start: 20110105, end: 20110105
  11. WYSTAL [Concomitant]
     Dosage: UNK
     Dates: start: 20110216, end: 20110221
  12. LOPEMIN [Concomitant]
     Dosage: UNK
     Route: 048
     Dates: start: 20110208, end: 20110218
  13. BANAN [Concomitant]
     Dosage: UNK
     Dates: start: 20110222, end: 20110225

REACTIONS (7)
  - Abdominal pain [Unknown]
  - Diarrhoea [Recovered/Resolved]
  - Ileus paralytic [Unknown]
  - Urinary tract infection [Recovered/Resolved]
  - Cold sweat [Unknown]
  - Dyspnoea [Unknown]
  - Pyrexia [Unknown]
